FAERS Safety Report 7576976-0 (Version None)
Quarter: 2011Q2

REPORT INFORMATION
  Report Type: 
  Country: None (occurrence: None)
  Receive Date: 20110624
  Receipt Date: 20110624
  Transmission Date: 20111010
  Serious: Yes (Hospitalization, Other)
  Sender: FDA-Public Use
  Company Number: None

PATIENT
  Age: 60 Year
  Sex: Female
  Weight: 63.5036 kg

DRUGS (1)
  1. LABETALOL HCL [Suspect]
     Indication: HYPERTENSION
     Dosage: 1 TABLET BID PO
     Route: 048
     Dates: start: 20110606, end: 20110620

REACTIONS (7)
  - DYSPNOEA [None]
  - PRURITUS [None]
  - SENSATION OF HEAVINESS [None]
  - MOOD SWINGS [None]
  - AGGRESSION [None]
  - ANGER [None]
  - DIZZINESS [None]
